FAERS Safety Report 7141761-0 (Version None)
Quarter: 2010Q4

REPORT INFORMATION
  Report Type: 
  Country: None (occurrence: None)
  Receive Date: 20101207
  Receipt Date: 20101125
  Transmission Date: 20110411
  Serious: Yes (Disabling)
  Sender: FDA-Public Use
  Company Number: CH-SANOFI-AVENTIS-2010SA071704

PATIENT
  Age: 61 Year
  Sex: Male
  Weight: 61 kg

DRUGS (7)
  1. ELOXATIN [Suspect]
     Route: 042
     Dates: start: 20100501, end: 20100501
  2. ELOXATIN [Suspect]
     Route: 042
     Dates: start: 20100801, end: 20100801
  3. MARCUMAR [Concomitant]
     Route: 048
  4. OXYCONTIN [Concomitant]
  5. ZURCAL [Concomitant]
  6. GEMZAR [Concomitant]
  7. CITALOPRAM HYDROBROMIDE [Concomitant]

REACTIONS (1)
  - POLYNEUROPATHY [None]
